FAERS Safety Report 5741975-8 (Version None)
Quarter: 2008Q2

REPORT INFORMATION
  Report Type: 
  Country: None (occurrence: None)
  Receive Date: 20080514
  Receipt Date: 20080514
  Transmission Date: 20081010
  Serious: Yes (Death)
  Sender: FDA-Public Use
  Company Number: None

PATIENT
  Sex: Female
  Weight: 114 kg

DRUGS (4)
  1. AVASTIN [Suspect]
     Indication: BREAST CANCER METASTATIC
     Dosage: 1415MG -15MG/KG-  ONCE ON 4/25/08  IV (DURATION: ONE TIME ONLY)
     Route: 042
     Dates: start: 20080425, end: 20080425
  2. IXEMPRA -IXABEPILONE-  45MG VIAL  BRISTOL-MYERS SQUIBB [Concomitant]
     Indication: BREAST CANCER METASTATIC
     Dosage: 80MG -40MG/M2-  ONCE ON 4/25/08  IV
     Route: 042
     Dates: start: 20080425, end: 20080425
  3. TRASTUZUMAB [Concomitant]
  4. ZOLEDRONIC ACID [Concomitant]

REACTIONS (4)
  - ABDOMINAL PAIN [None]
  - HEPATIC HAEMATOMA [None]
  - LIVER FUNCTION TEST ABNORMAL [None]
  - PANCYTOPENIA [None]
